FAERS Safety Report 6234273-X (Version None)
Quarter: 2009Q2

REPORT INFORMATION
  Report Type: 
  Country: None (occurrence: None)
  Receive Date: 20090618
  Receipt Date: 20090611
  Transmission Date: 20091009
  Serious: Yes (Hospitalization)
  Sender: FDA-Public Use
  Company Number: FR-JNJFOC-20090603888

PATIENT
  Sex: Female

DRUGS (3)
  1. RISPERDAL [Suspect]
     Indication: HALLUCINATION
     Route: 048
  2. LEXOMIL [Suspect]
     Indication: DRUG USE FOR UNKNOWN INDICATION
     Route: 048
  3. EFFERALGAN [Concomitant]
     Route: 048

REACTIONS (3)
  - CONFUSIONAL STATE [None]
  - DELIRIUM [None]
  - FALL [None]
